FAERS Safety Report 10280477 (Version 1)
Quarter: 2014Q3

REPORT INFORMATION
  Report Type: Spontaneous
  Country: US (occurrence: US)
  Receive Date: 20140707
  Receipt Date: 20140707
  Transmission Date: 20150326
  Serious: No
  Sender: FDA-Public Use
  Company Number: US-PFIZER INC-2014184104

PATIENT
  Age: 61 Year
  Sex: Male
  Weight: 113 kg

DRUGS (1)
  1. NICOTROL [Suspect]
     Active Substance: NICOTINE
     Indication: SMOKING CESSATION THERAPY
     Dosage: 4 MG, UNK
     Dates: start: 20140628

REACTIONS (3)
  - Respiratory tract irritation [Unknown]
  - Product quality issue [Unknown]
  - Throat irritation [Unknown]

NARRATIVE: CASE EVENT DATE: 201406
